FAERS Safety Report 9918554 (Version 1)
Quarter: 2014Q1

REPORT INFORMATION
  Report Type: Spontaneous
  Country: US (occurrence: US)
  Receive Date: 20140224
  Receipt Date: 20140224
  Transmission Date: 20141002
  Serious: No
  Sender: FDA-Public Use
  Company Number: US-BIOGENIDEC-2014BI015222

PATIENT
  Sex: Female

DRUGS (14)
  1. TECFIDERA [Suspect]
     Indication: MULTIPLE SCLEROSIS
     Route: 048
     Dates: start: 20140129
  2. ASPIRIN EC LO-DOSE [Concomitant]
  3. GEMFIBROZIL [Concomitant]
  4. HYDROCHLOROTHIAZIDE [Concomitant]
  5. LEVOTHYROXINE SODIUM [Concomitant]
  6. LOSARTAN POTASSIUM [Concomitant]
  7. METOPROLOL TARTRATE [Concomitant]
  8. OMEPRAZOLE [Concomitant]
  9. ONGLYZA [Concomitant]
  10. SIMVASTATIN [Concomitant]
  11. UCERIS [Concomitant]
  12. VITAMIN B12 [Concomitant]
  13. VITAMIN D-3 [Concomitant]
  14. ZOLPIDEM TARTRATE [Concomitant]

REACTIONS (3)
  - Neuropathy peripheral [Unknown]
  - Flushing [Unknown]
  - Abdominal discomfort [Unknown]
